FAERS Safety Report 13527392 (Version 1)
Quarter: 2017Q2

REPORT INFORMATION
  Report Type: Spontaneous
  Country: US (occurrence: US)
  Receive Date: 20170509
  Receipt Date: 20170509
  Transmission Date: 20170830
  Serious: Yes (Life-Threatening, Hospitalization)
  Sender: FDA-Public Use
  Company Number: US-JNJFOC-20170506139

PATIENT
  Age: 35 Year
  Sex: Female

DRUGS (1)
  1. INVOKANA [Suspect]
     Active Substance: CANAGLIFLOZIN
     Indication: PRODUCT USED FOR UNKNOWN INDICATION
     Route: 048
     Dates: start: 20150511, end: 20150516

REACTIONS (4)
  - Acute kidney injury [Unknown]
  - Diabetic ketoacidosis [Unknown]
  - Septic shock [Unknown]
  - Urosepsis [Unknown]

NARRATIVE: CASE EVENT DATE: 20150516
